FAERS Safety Report 10470159 (Version 1)
Quarter: 2014Q3

REPORT INFORMATION
  Report Type: Spontaneous
  Country: US (occurrence: None)
  Receive Date: 20140904
  Receipt Date: 20140904
  Transmission Date: 20150326
  Serious: No
  Sender: FDA-Public Use
  Company Number: 228852LEO

PATIENT
  Sex: Female

DRUGS (1)
  1. PICATO [Suspect]
     Active Substance: INGENOL MEBUTATE
     Dosage: (ONCE DAILY FOR THREE DAYS)
     Dates: start: 20140713, end: 20140715

REACTIONS (1)
  - Application site erosion [None]

NARRATIVE: CASE EVENT DATE: 20140713
